FAERS Safety Report 14319584 (Version 1)
Quarter: 2017Q4

REPORT INFORMATION
  Report Type: Spontaneous
  Country: PT (occurrence: PT)
  Receive Date: 20171222
  Receipt Date: 20171222
  Transmission Date: 20180321
  Serious: Yes (Hospitalization)
  Sender: FDA-Public Use
  Company Number: PT-NOVAST LABORATORIES, LTD-PT-2017NOV000089

PATIENT
  Age: 78 Year
  Sex: Female

DRUGS (2)
  1. BUTALBITAL, ACETAMINOPHEN, AND CAFFEINE [Suspect]
     Active Substance: ACETAMINOPHEN\BUTALBITAL\CAFFEINE
     Indication: BODY TEMPERATURE INCREASED
     Dosage: 1 G, TID
  2. BUTALBITAL, ACETAMINOPHEN, AND CAFFEINE [Suspect]
     Active Substance: ACETAMINOPHEN\BUTALBITAL\CAFFEINE
     Indication: ARTHRALGIA
     Dosage: 1 G, UNK
     Route: 048

REACTIONS (1)
  - Methaemoglobinaemia [Recovering/Resolving]
